FAERS Safety Report 16568736 (Version 1)
Quarter: 2019Q3

REPORT INFORMATION
  Report Type: Spontaneous
  Country: DE (occurrence: DE)
  Receive Date: 20190713
  Receipt Date: 20190713
  Transmission Date: 20191004
  Serious: Yes (Hospitalization)
  Sender: FDA-Public Use
  Company Number: DE-AMGEN-DEUSP2019109467

PATIENT
  Age: 47 Year
  Sex: Female

DRUGS (3)
  1. ADALIMUMAB [Suspect]
     Active Substance: ADALIMUMAB
     Indication: PRODUCT USED FOR UNKNOWN INDICATION
     Dosage: UNK MILLIGRAM, Q2WK
     Route: 065
     Dates: start: 201702
  2. MESALAZIN [Concomitant]
     Active Substance: MESALAMINE
     Dosage: 1 GRAM, 3 TIMES A DAY
     Route: 065
  3. PREDNISOLON [PREDNISOLONE] [Suspect]
     Active Substance: PREDNISOLONE
     Indication: PRODUCT USED FOR UNKNOWN INDICATION
     Dosage: 5 MILLIGRAM, QD
     Route: 065

REACTIONS (5)
  - Pyrexia [Unknown]
  - Productive cough [Unknown]
  - Nuchal rigidity [Unknown]
  - Bronchitis [Unknown]
  - Headache [Unknown]
